FAERS Safety Report 12452247 (Version 1)
Quarter: 2016Q2

REPORT INFORMATION
  Report Type: Other
  Country: IT (occurrence: IT)
  Receive Date: 20160609
  Receipt Date: 20160609
  Transmission Date: 20160815
  Serious: Yes (Other)
  Sender: FDA-Public Use
  Company Number: IT-VALIDUS PHARMACEUTICALS LLC-IT-2016VAL000678

PATIENT
  Sex: Male

DRUGS (10)
  1. LASIX [Suspect]
     Active Substance: FUROSEMIDE
     Dosage: 50 MG, QD
     Route: 048
  2. TOTALIP [Concomitant]
     Active Substance: ATORVASTATIN
     Indication: PRODUCT USED FOR UNKNOWN INDICATION
     Dosage: UNK
  3. ALLOPURINOL. [Concomitant]
     Active Substance: ALLOPURINOL
     Indication: PRODUCT USED FOR UNKNOWN INDICATION
     Dosage: UNK
  4. KANRENOL [Concomitant]
     Active Substance: CANRENOATE POTASSIUM
     Indication: PRODUCT USED FOR UNKNOWN INDICATION
     Dosage: UNK
     Route: 048
  5. TRIATEC                            /00885601/ [Suspect]
     Active Substance: RAMIPRIL
     Indication: HYPERTENSION
     Dosage: 1 UNIT, QD
     Route: 048
     Dates: start: 20150101, end: 20150711
  6. LANOXIN [Suspect]
     Active Substance: DIGOXIN
     Indication: HYPERTENSIVE HEART DISEASE
     Dosage: 1 UNIT, QD
     Route: 048
     Dates: start: 20150101, end: 20150711
  7. LASIX [Suspect]
     Active Substance: FUROSEMIDE
     Indication: PRODUCT USED FOR UNKNOWN INDICATION
     Dosage: 125 MG, QD
     Route: 048
     Dates: start: 20150101, end: 20150711
  8. CARDIOASPIRIN [Concomitant]
     Active Substance: ASPIRIN
     Indication: PRODUCT USED FOR UNKNOWN INDICATION
     Dosage: UNK
  9. COUMADIN [Concomitant]
     Active Substance: WARFARIN SODIUM
     Indication: PRODUCT USED FOR UNKNOWN INDICATION
     Dosage: UNK
  10. PARIET [Concomitant]
     Active Substance: RABEPRAZOLE SODIUM
     Indication: PRODUCT USED FOR UNKNOWN INDICATION
     Dosage: UNK

REACTIONS (7)
  - Abdominal pain [Unknown]
  - Hyperkalaemia [Unknown]
  - Asthenia [Unknown]
  - Diarrhoea [Unknown]
  - Hyponatraemia [Unknown]
  - Muscle spasms [Unknown]
  - Overdose [Unknown]

NARRATIVE: CASE EVENT DATE: 20150611
